FAERS Safety Report 10494514 (Version 3)
Quarter: 2014Q4

REPORT INFORMATION
  Report Type: Spontaneous
  Country: ZA (occurrence: ZA)
  Receive Date: 20141003
  Receipt Date: 20141007
  Transmission Date: 20150528
  Serious: Yes (Hospitalization, Other)
  Sender: FDA-Public Use
  Company Number: PHHY2014ZA103622

PATIENT
  Age: 6 Year
  Sex: Male

DRUGS (5)
  1. EXJADE [Suspect]
     Active Substance: DEFERASIROX
     Indication: OFF LABEL USE
     Dosage: 500 MG, ALTERNATING WITH 750 MG DAILY
     Dates: start: 2011, end: 20140822
  2. EXJADE [Suspect]
     Active Substance: DEFERASIROX
     Indication: THALASSAEMIA BETA
     Dosage: 30 MG/KG, UNK
  3. DESFERAL [Suspect]
     Active Substance: DEFEROXAMINE MESYLATE
     Indication: THALASSAEMIA BETA
     Dosage: 20-30 MG/KG, UNK
  4. EXJADE [Suspect]
     Active Substance: DEFERASIROX
     Dosage: 20 MG/KG
  5. DESFERAL [Suspect]
     Active Substance: DEFEROXAMINE MESYLATE
     Dosage: 50 MG/KG, OVER 10 HRS
     Route: 042

REACTIONS (10)
  - Hypokalaemia [Unknown]
  - Blood bicarbonate decreased [Unknown]
  - Jaundice [Unknown]
  - Abdominal pain [Unknown]
  - Hypophosphataemia [Unknown]
  - Renal tubular acidosis [Recovering/Resolving]
  - Infection [Unknown]
  - Cholelithiasis [Unknown]
  - Myalgia [Unknown]
  - Arthralgia [Unknown]

NARRATIVE: CASE EVENT DATE: 20140725
